FAERS Safety Report 15882034 (Version 1)
Quarter: 2019Q1

REPORT INFORMATION
  Report Type: Report from Study
  Country: IE (occurrence: IE)
  Receive Date: 20190128
  Receipt Date: 20190128
  Transmission Date: 20190417
  Serious: Yes (Other)
  Sender: FDA-Public Use
  Company Number: IE-JNJFOC-20190130789

PATIENT

DRUGS (1)
  1. USTEKINUMAB [Suspect]
     Active Substance: USTEKINUMAB
     Indication: TEMPORAL ARTERITIS
     Dosage: AT WEEK O, WEEK 4 AND THEN EVERY 12 WEEKS
     Route: 058

REACTIONS (3)
  - Product use in unapproved indication [Unknown]
  - Respiratory tract infection [Unknown]
  - Off label use [Unknown]
